FAERS Safety Report 7208334-2 (Version None)
Quarter: 2010Q4

REPORT INFORMATION
  Report Type: 
  Country: None (occurrence: None)
  Receive Date: 20101126
  Receipt Date: 20101019
  Transmission Date: 20110411
  Serious: Yes (Hospitalization)
  Sender: FDA-Public Use
  Company Number: 316843

PATIENT
  Age: 49 Year
  Sex: Female
  Weight: 146.9 kg

DRUGS (14)
  1. VICTOZA [Suspect]
     Indication: TYPE 2 DIABETES MELLITUS
     Dosage: 0.6 MG, QD,SUBCUTANEOUS; 1.2 MG, QD, SUBCUTANEOUS; 1.8 MG, QD, SUBCUTANEOUS; 1.2 MG, QD, SUBCUTANEOU
     Route: 058
     Dates: end: 20100901
  2. VICTOZA [Suspect]
     Indication: TYPE 2 DIABETES MELLITUS
     Dosage: 0.6 MG, QD,SUBCUTANEOUS; 1.2 MG, QD, SUBCUTANEOUS; 1.8 MG, QD, SUBCUTANEOUS; 1.2 MG, QD, SUBCUTANEOU
     Route: 058
     Dates: start: 20100901, end: 20100921
  3. VICTOZA [Suspect]
     Indication: TYPE 2 DIABETES MELLITUS
     Dosage: 0.6 MG, QD,SUBCUTANEOUS; 1.2 MG, QD, SUBCUTANEOUS; 1.8 MG, QD, SUBCUTANEOUS; 1.2 MG, QD, SUBCUTANEOU
     Route: 058
     Dates: start: 20100921, end: 20101011
  4. VICTOZA [Suspect]
     Indication: TYPE 2 DIABETES MELLITUS
     Dosage: 0.6 MG, QD,SUBCUTANEOUS; 1.2 MG, QD, SUBCUTANEOUS; 1.8 MG, QD, SUBCUTANEOUS; 1.2 MG, QD, SUBCUTANEOU
     Route: 058
     Dates: start: 20100831
  5. METFORMIN HCL [Concomitant]
  6. ACTOS [Concomitant]
  7. LISINOPRIL + HIDROCHLOROTIAZIDA (HYDROCHLOROTHIAZIDEM, LISIPOPRIL) [Concomitant]
  8. GEMFIBROZIL [Concomitant]
  9. TRAZODONE (TRAZODONE) [Concomitant]
  10. LITHIUM CARBONATE [Concomitant]
  11. SERTRALINE HYDROCHLORIDE [Concomitant]
  12. RISPERDAL [Concomitant]
  13. BENZTROPINE MESYLATE [Concomitant]
  14. AMLLODIPINE [Concomitant]

REACTIONS (2)
  - NAUSEA [None]
  - PANCREATITIS ACUTE [None]
